FAERS Safety Report 19886797 (Version 1)
Quarter: 2021Q3

REPORT INFORMATION
  Report Type: Report from Study
  Country: FR (occurrence: FR)
  Receive Date: 20210928
  Receipt Date: 20210928
  Transmission Date: 20211014
  Serious: Yes (Death, Hospitalization)
  Sender: FDA-Public Use
  Company Number: FR-SA-2016SA188424

PATIENT
  Age: 82 Year
  Sex: Male
  Weight: 80 kg

DRUGS (35)
  1. AMLOR [Concomitant]
     Active Substance: AMLODIPINE BESYLATE
     Indication: HYPERTENSION
     Dosage: UNK UNK,UNK
     Route: 048
  2. PREGABALIN. [Concomitant]
     Active Substance: PREGABALIN
     Dosage: UNK UNK,UNK
     Route: 048
     Dates: start: 20160811, end: 20160816
  3. PREDNISONE. [Concomitant]
     Active Substance: PREDNISONE
     Dosage: UNK UNK,UNK
     Route: 048
     Dates: start: 20160811
  4. MIDAZOLAM. [Concomitant]
     Active Substance: MIDAZOLAM
     Indication: BONE PAIN
     Dosage: 2.5 MG,QD
     Route: 058
     Dates: start: 2016
  5. COTAREG [Concomitant]
     Active Substance: HYDROCHLOROTHIAZIDE\VALSARTAN
     Indication: HYPERTENSION
     Dosage: UNK UNK,UNK
     Route: 048
     Dates: start: 20160621
  6. PLAVIX [Concomitant]
     Active Substance: CLOPIDOGREL BISULFATE
     Indication: CAROTID ARTERY STENOSIS
     Dosage: UNK UNK,UNK
     Route: 048
  7. PARACETAMOL [Concomitant]
     Active Substance: ACETAMINOPHEN
     Indication: BONE PAIN
     Dosage: UNK UNK,UNK
     Route: 048
     Dates: start: 201606
  8. AMARYL [Concomitant]
     Active Substance: GLIMEPIRIDE
     Indication: DIABETES MELLITUS
     Dosage: UNK UNK,UNK
     Route: 048
     Dates: start: 2011
  9. OXYNORM [Concomitant]
     Active Substance: OXYCODONE HYDROCHLORIDE
     Indication: BONE PAIN
     Dosage: UNK UNK,UNK
     Route: 048
     Dates: start: 201606
  10. ACTISKENAN [Concomitant]
     Active Substance: MORPHINE SULFATE
     Dosage: 5 MG,PRN
     Route: 065
  11. MACROGOL [Concomitant]
     Active Substance: POLYETHYLENE GLYCOLS
     Indication: CONSTIPATION
     Dosage: UNK UNK,UNK
     Route: 048
     Dates: start: 20160809
  12. CABAZITAXEL [Suspect]
     Active Substance: CABAZITAXEL
     Dosage: 50 MG,QCY
     Route: 065
     Dates: start: 20161003, end: 20161003
  13. TAREG [Concomitant]
     Active Substance: VALSARTAN
     Indication: HYPERTENSION
     Dosage: UNK UNK,UNK
     Route: 048
  14. STAGID [Concomitant]
     Active Substance: METFORMIN PAMOATE
     Indication: DIABETES MELLITUS
     Dosage: UNK UNK,UNK
     Route: 048
     Dates: start: 2011
  15. METFORMIN [Concomitant]
     Active Substance: METFORMIN HYDROCHLORIDE
     Indication: DIABETES MELLITUS
     Dosage: UNK UNK,UNK
     Route: 048
     Dates: start: 20160811, end: 20160816
  16. INNOHEP [Concomitant]
     Active Substance: TINZAPARIN SODIUM
     Indication: PULMONARY EMBOLISM
     Dosage: 14000 IU,QD
     Route: 058
     Dates: start: 20160920
  17. NEFOPAM [Concomitant]
     Active Substance: NEFOPAM
     Dosage: UNK UNK,UNK
     Route: 030
     Dates: start: 20160812, end: 20160812
  18. TEVAGRASTIM [Concomitant]
     Active Substance: FILGRASTIM
     Dosage: DOSE: 30 MUI
     Route: 058
     Dates: start: 20160701, end: 20161009
  19. GAVISCON [ALUMINIUM HYDROXIDE;MAGNESIUM CARBONATE;SODIUM ALGINATE] [Concomitant]
     Active Substance: ALUMINUM HYDROXIDE\MAGNESIUM CARBONATE\SODIUM ALGINATE
     Indication: GASTROOESOPHAGEAL REFLUX DISEASE
     Dosage: UNK UNK,UNK
     Route: 065
     Dates: start: 20161003
  20. LANTUS [Concomitant]
     Active Substance: INSULIN GLARGINE
     Indication: DIABETES MELLITUS
     Dosage: 20 IU,QD
     Route: 058
     Dates: start: 2011
  21. METHYLPREDNISOLONE. [Concomitant]
     Active Substance: METHYLPREDNISOLONE
     Dosage: 80 MG,QD
     Route: 065
  22. DECAPEPTYL (ACETATE) [Concomitant]
     Active Substance: TRIPTORELIN ACETATE
     Indication: HORMONE THERAPY
     Dosage: UNK
     Route: 058
     Dates: start: 20151003
  23. INEGY [Concomitant]
     Active Substance: EZETIMIBE\SIMVASTATIN
     Indication: PROPHYLAXIS
     Dosage: UNK UNK,UNK
     Route: 048
  24. PREDNISOLONE. [Concomitant]
     Active Substance: PREDNISOLONE
     Dosage: UNK UNK,UNK
     Route: 048
     Dates: start: 20160811, end: 20160816
  25. PREDNISOLONE. [Concomitant]
     Active Substance: PREDNISOLONE
     Dosage: UNK UNK,UNK
     Route: 048
     Dates: start: 20160817
  26. CLOPIDOGREL [Concomitant]
     Active Substance: CLOPIDOGREL BISULFATE
     Indication: PROPHYLAXIS
     Dosage: UNK UNK,UNK
     Route: 048
     Dates: start: 20160811, end: 20160816
  27. MOVICOL [Concomitant]
     Active Substance: POLYETHYLENE GLYCOL 3350\POTASSIUM CHLORIDE\SODIUM BICARBONATE\SODIUM CHLORIDE
     Indication: DIARRHOEA
     Dosage: UNK
     Route: 048
     Dates: start: 20160811, end: 20160817
  28. DUROGESIC [Concomitant]
     Active Substance: FENTANYL
     Dosage: UNK UNK,UNK
     Route: 062
     Dates: start: 20160812
  29. EUPANTOL [Concomitant]
     Active Substance: PANTOPRAZOLE SODIUM
     Dosage: 40 MG,UNK
     Route: 065
  30. TEVAGRASTIM [Concomitant]
     Active Substance: FILGRASTIM
     Indication: NEUTROPENIA
     Dosage: UNK UNK,UNK
     Route: 058
     Dates: start: 20161005, end: 20161009
  31. CABAZITAXEL [Suspect]
     Active Substance: CABAZITAXEL
     Indication: PROSTATE CANCER METASTATIC
     Dosage: 50 MG,QCY
     Route: 065
     Dates: start: 20160628, end: 20160628
  32. DUROGESIC [Concomitant]
     Active Substance: FENTANYL
     Indication: BONE PAIN
     Dosage: UNK UNK,UNK
     Route: 062
     Dates: start: 20160531, end: 20160719
  33. DUROGESIC [Concomitant]
     Active Substance: FENTANYL
     Dosage: UNK UNK,UNK
     Route: 062
     Dates: start: 20160720, end: 20160811
  34. PREDNISONE. [Suspect]
     Active Substance: PREDNISONE
     Dosage: 80 MG,QD
     Route: 065
     Dates: start: 20160628, end: 20161011
  35. FENTANYL. [Concomitant]
     Active Substance: FENTANYL
     Dosage: UNK UNK,UNK
     Route: 062
     Dates: start: 20160811, end: 20160815

REACTIONS (2)
  - Disease progression [Fatal]
  - Pancytopenia [Not Recovered/Not Resolved]

NARRATIVE: CASE EVENT DATE: 20161011
